FAERS Safety Report 6155266-7 (Version None)
Quarter: 2009Q2

REPORT INFORMATION
  Report Type: 
  Country: None (occurrence: None)
  Receive Date: 20090415
  Receipt Date: 20090407
  Transmission Date: 20091009
  Serious: Yes (Hospitalization)
  Sender: FDA-Public Use
  Company Number: US-ASTRAZENECA-2009UW08694

PATIENT
  Age: 1005 Month
  Sex: Female
  Weight: 52.6 kg

DRUGS (3)
  1. PULMICORT-100 [Suspect]
     Route: 055
     Dates: start: 20090101
  2. BROVANA [Suspect]
     Indication: CHRONIC OBSTRUCTIVE PULMONARY DISEASE
     Dosage: 15 UG/2ML
     Dates: start: 20070101
  3. SPIRIVA [Concomitant]

REACTIONS (4)
  - DIZZINESS [None]
  - LUNG INFECTION [None]
  - MEDICATION ERROR [None]
  - WEIGHT DECREASED [None]
